FAERS Safety Report 12339875 (Version 2)
Quarter: 2016Q2

REPORT INFORMATION
  Report Type: Spontaneous
  Country: US (occurrence: US)
  Receive Date: 20160506
  Receipt Date: 20160517
  Transmission Date: 20160815
  Serious: Yes (Other)
  Sender: FDA-Public Use
  Company Number: US-BEH-2016061959

PATIENT
  Sex: Male
  Weight: 90 kg

DRUGS (27)
  1. HIZENTRA [Suspect]
     Active Substance: HUMAN IMMUNOGLOBULIN G
     Indication: IMMUNODEFICIENCY COMMON VARIABLE
     Route: 058
     Dates: start: 20130508
  2. VITAMIN D [Concomitant]
     Active Substance: CHOLECALCIFEROL
  3. ACETAMINOPHEN. [Concomitant]
     Active Substance: ACETAMINOPHEN
  4. DIPHENHYDRAMINE. [Concomitant]
     Active Substance: DIPHENHYDRAMINE
  5. LASIX [Concomitant]
     Active Substance: FUROSEMIDE
  6. POTASSIUM [Concomitant]
     Active Substance: POTASSIUM
  7. XOPENEX [Concomitant]
     Active Substance: LEVALBUTEROL HYDROCHLORIDE
  8. SINGULAIR [Concomitant]
     Active Substance: MONTELUKAST SODIUM
  9. ASTEPRO [Concomitant]
     Active Substance: AZELASTINE HYDROCHLORIDE
  10. COQ [Concomitant]
  11. LIDOCAINE/PRILOCAINE [Concomitant]
  12. CRESTORM [Concomitant]
  13. PROTONIX [Concomitant]
     Active Substance: PANTOPRAZOLE SODIUM
  14. ZOLOFT [Concomitant]
     Active Substance: SERTRALINE HYDROCHLORIDE
  15. TOPROL XL [Concomitant]
     Active Substance: METOPROLOL SUCCINATE
  16. ASPIRIN. [Concomitant]
     Active Substance: ASPIRIN
  17. ALFUZOSIN [Concomitant]
     Active Substance: ALFUZOSIN
  18. PLAVIX [Concomitant]
     Active Substance: CLOPIDOGREL BISULFATE
  19. BROMELAIN [Concomitant]
     Active Substance: BROMELAINS
  20. PROSCAR [Concomitant]
     Active Substance: FINASTERIDE
  21. NASAL SPRAY [Concomitant]
     Active Substance: UNSPECIFIED INGREDIENT
  22. ATROVENT [Concomitant]
     Active Substance: IPRATROPIUM BROMIDE
  23. LUTEIN [Concomitant]
     Active Substance: LUTEIN
  24. EPIPEN [Concomitant]
     Active Substance: EPINEPHRINE
  25. SYNTHROID [Concomitant]
     Active Substance: LEVOTHYROXINE SODIUM
  26. VITAMIN B [Concomitant]
     Active Substance: VITAMIN B
  27. TUMERIC [Concomitant]
     Active Substance: TURMERIC

REACTIONS (1)
  - Arrhythmia [Unknown]
